FAERS Safety Report 6883771-4 (Version None)
Quarter: 2010Q3

REPORT INFORMATION
  Report Type: 
  Country: None (occurrence: None)
  Receive Date: 20100729
  Receipt Date: 20100723
  Transmission Date: 20110219
  Serious: Yes (Hospitalization)
  Sender: FDA-Public Use
  Company Number: US-BRISTOL-MYERS SQUIBB COMPANY-15207624

PATIENT
  Age: 2 Year
  Sex: Male

DRUGS (1)
  1. ABILIFY [Suspect]
     Dosage: 2 DOSAGE FORM=2 TABLETS
     Dates: start: 20100622

REACTIONS (4)
  - ACCIDENTAL DRUG INTAKE BY CHILD [None]
  - SOMNOLENCE [None]
  - TREMOR [None]
  - VOMITING [None]
